FAERS Safety Report 21958511 (Version 1)
Quarter: 2023Q1

REPORT INFORMATION
  Report Type: Spontaneous
  Country: US (occurrence: None)
  Receive Date: 20230203
  Receipt Date: 20230203
  Transmission Date: 20230417
  Serious: No
  Sender: FDA-Public Use
  Company Number: None

PATIENT
  Age: 77 Year
  Sex: Female
  Weight: 72.48 kg

DRUGS (18)
  1. GAMUNEX-C [Suspect]
     Active Substance: HUMAN IMMUNOGLOBULIN G
     Indication: Polyneuropathy
     Dosage: OTHER FREQUENCY : DAILY X 3 DAYS;?
     Route: 042
  2. GAMUNEX-C [Suspect]
     Active Substance: HUMAN IMMUNOGLOBULIN G
     Indication: Polyneuropathy
     Dosage: OTHER FREQUENCY : DAILY X3 DAYS;?
  3. ANTACID CALCIUM [Concomitant]
  4. AZOPT [Concomitant]
     Active Substance: BRINZOLAMIDE
  5. CYMBALTA [Concomitant]
     Active Substance: DULOXETINE HYDROCHLORIDE
  6. DIPHENHYDRAMINE [Concomitant]
     Active Substance: DIPHENHYDRAMINE
  7. LATANOPROST [Concomitant]
     Active Substance: LATANOPROST
  8. MICARDIS [Concomitant]
     Active Substance: TELMISARTAN
  9. OXYBUTYNIN CHLORIDER ER [Concomitant]
  10. PRED FORTE [Concomitant]
     Active Substance: PREDNISOLONE ACETATE
  11. RITUXAN [Concomitant]
     Active Substance: RITUXIMAB
  12. SOLU-MEDROL [Concomitant]
     Active Substance: METHYLPREDNISOLONE SODIUM SUCCINATE
  13. TOPROL XL [Concomitant]
  14. TOVIAZ [Concomitant]
     Active Substance: FESOTERODINE FUMARATE
  15. TRAZODONE [Concomitant]
     Active Substance: TRAZODONE HYDROCHLORIDE
  16. TYLENOL [Concomitant]
     Active Substance: ACETAMINOPHEN
  17. WELLBUTRIN [Concomitant]
     Active Substance: BUPROPION HYDROCHLORIDE
  18. ZOCOR [Concomitant]
     Active Substance: SIMVASTATIN

REACTIONS (1)
  - Drug ineffective [None]
